FAERS Safety Report 4993585-8 (Version None)
Quarter: 2006Q2

REPORT INFORMATION
  Report Type: 
  Country: None (occurrence: None)
  Receive Date: 20060505
  Receipt Date: 20060425
  Transmission Date: 20061013
  Serious: Yes (Other)
  Sender: FDA-Public Use
  Company Number: FR-BRISTOL-MYERS SQUIBB COMPANY-13357215

PATIENT
  Age: 75 Year
  Sex: Male

DRUGS (12)
  1. TAXOL [Suspect]
     Indication: LUNG NEOPLASM MALIGNANT
     Route: 042
     Dates: start: 20060404, end: 20060404
  2. CARBOPLATIN [Suspect]
     Indication: LUNG NEOPLASM MALIGNANT
     Route: 042
     Dates: start: 20060404, end: 20060404
  3. KREDEX [Concomitant]
  4. COVERSYL [Concomitant]
  5. FUROSEMIDE [Concomitant]
  6. ALPEN [Concomitant]
  7. TRAMADOL HCL [Concomitant]
  8. PLAVIX [Concomitant]
  9. ALDACTONE [Concomitant]
  10. VASTEN [Concomitant]
  11. RILMENIDINE [Concomitant]
  12. FURADANTIN [Concomitant]

REACTIONS (2)
  - CONSTIPATION [None]
  - URINARY RETENTION [None]
